FAERS Safety Report 9669038 (Version 1)
Quarter: 2013Q4

REPORT INFORMATION
  Report Type: Spontaneous
  Country: US (occurrence: US)
  Receive Date: 20131105
  Receipt Date: 20131105
  Transmission Date: 20140711
  Serious: No
  Sender: FDA-Public Use
  Company Number: US-PFIZER INC-2013311905

PATIENT
  Sex: 0

DRUGS (1)
  1. TETRACYCLINE HCL [Suspect]
     Indication: KIDNEY INFECTION
     Dosage: UNK

REACTIONS (2)
  - Tooth discolouration [Unknown]
  - Bone disorder [Unknown]
